FAERS Safety Report 19143698 (Version 1)
Quarter: 2021Q2

REPORT INFORMATION
  Report Type: Spontaneous
  Country: RS (occurrence: RS)
  Receive Date: 20210416
  Receipt Date: 20210416
  Transmission Date: 20210717
  Serious: Yes (Life-Threatening, Hospitalization)
  Sender: FDA-Public Use
  Company Number: RS-TEVA-2021-RS-1901626

PATIENT
  Age: 68 Year
  Sex: Male

DRUGS (6)
  1. RASETRON [Concomitant]
     Dosage: 2 MILLIGRAM DAILY;
     Route: 048
  2. HEPARIN [Concomitant]
     Active Substance: HEPARIN SODIUM
     Route: 040
     Dates: start: 20210302, end: 20210302
  3. SINTOPOZID [Suspect]
     Active Substance: ETOPOSIDE
     Indication: LUNG NEOPLASM MALIGNANT
     Route: 042
     Dates: start: 20210304, end: 20210305
  4. CISPLATIN EBEWE [Suspect]
     Active Substance: CISPLATIN
     Indication: LUNG NEOPLASM MALIGNANT
     Route: 042
     Dates: start: 20210204, end: 20210304
  5. CONTROLOC [Concomitant]
     Active Substance: PANTOPRAZOLE SODIUM
     Dosage: ADDITIONAL INFORMATION ON DRUG: CHRONIC THERAPY.
     Route: 048
  6. SPIRIVA [Concomitant]
     Active Substance: TIOTROPIUM BROMIDE MONOHYDRATE
     Dosage: DOSAGE: 1X2 BREATH; ADDITIONAL INFORMATION ON DRUG: CHRONIC THERAPY.
     Route: 065

REACTIONS (1)
  - Pancytopenia [Recovering/Resolving]

NARRATIVE: CASE EVENT DATE: 20210318
